FAERS Safety Report 8104147-8 (Version None)
Quarter: 2012Q1

REPORT INFORMATION
  Report Type: 
  Country: None (occurrence: None)
  Receive Date: 20120201
  Receipt Date: 20120125
  Transmission Date: 20120608
  Serious: No
  Sender: FDA-Public Use
  Company Number: US-B.I. PHARMACEUTICALS,INC./RIDGEFIELD-2012-BP-01581BP

PATIENT
  Sex: Male

DRUGS (10)
  1. LOPID [Concomitant]
     Indication: BLOOD CHOLESTEROL INCREASED
     Route: 048
  2. ASPIRIN [Concomitant]
     Indication: PROPHYLAXIS
     Route: 048
     Dates: end: 20111101
  3. PLAVIX [Concomitant]
     Indication: CARDIOVASCULAR EVENT PROPHYLAXIS
  4. IMDUR [Concomitant]
     Indication: CHEST PAIN
     Route: 048
  5. PRADAXA [Suspect]
     Indication: ATRIAL FIBRILLATION
     Dosage: 150 MG
     Route: 048
     Dates: start: 20110801
  6. NORVASC [Concomitant]
     Indication: CHEST PAIN
     Route: 048
  7. METOPROLOL TARTRATE [Concomitant]
     Indication: CHEST PAIN
     Route: 048
  8. XANAX [Concomitant]
     Indication: TINNITUS
     Route: 048
  9. VICODIN [Concomitant]
     Indication: OSTEOARTHRITIS
     Route: 048
  10. PLAVIX [Concomitant]
     Indication: PROPHYLAXIS
     Route: 048
     Dates: end: 20111101

REACTIONS (5)
  - ABDOMINAL PAIN UPPER [None]
  - PAIN [None]
  - FEELING COLD [None]
  - SOMNOLENCE [None]
  - ABDOMINAL DISCOMFORT [None]
